FAERS Safety Report 18396129 (Version 1)
Quarter: 2020Q4

REPORT INFORMATION
  Report Type: Spontaneous
  Country: IT (occurrence: IT)
  Receive Date: 20201019
  Receipt Date: 20201019
  Transmission Date: 20210114
  Serious: Yes (Death, Other)
  Sender: FDA-Public Use
  Company Number: IT-ROCHE-2694746

PATIENT
  Age: 6 Year
  Sex: Male
  Weight: 22 kg

DRUGS (13)
  1. RITUXIMAB. [Suspect]
     Active Substance: RITUXIMAB
     Indication: BURKITT^S LYMPHOMA
     Route: 065
  2. MESNA. [Suspect]
     Active Substance: MESNA
     Indication: BURKITT^S LYMPHOMA
     Route: 065
  3. IDARUBICINE [Suspect]
     Active Substance: IDARUBICIN
     Indication: BURKITT^S LYMPHOMA
     Dosage: 10 MG/M2 OVER 4 HRS
     Route: 065
  4. GRANULOCYTE COLONY STIMULATING FACTOR [Concomitant]
     Active Substance: GRANULOCYTE COLONY-STIMULATING FACTOR NOS
  5. AMIKACIN. [Concomitant]
     Active Substance: AMIKACIN
     Indication: PRODUCT USED FOR UNKNOWN INDICATION
  6. MESNA. [Suspect]
     Active Substance: MESNA
     Route: 065
  7. CARBOPLATIN. [Suspect]
     Active Substance: CARBOPLATIN
     Indication: BURKITT^S LYMPHOMA
     Dosage: CONTINUOUS INFUSION OVER 4 DAYS
     Route: 042
  8. VINCRISTINE [Suspect]
     Active Substance: VINCRISTINE
     Indication: BURKITT^S LYMPHOMA
     Dosage: CONTINUOUS OVER 4 DAYS
     Route: 042
  9. VANCOMYCIN [Concomitant]
     Active Substance: VANCOMYCIN
     Indication: PRODUCT USED FOR UNKNOWN INDICATION
  10. IFOSFAMIDE. [Suspect]
     Active Substance: IFOSFAMIDE
     Indication: BURKITT^S LYMPHOMA
     Dosage: 2 G/M2 OVER 5 DAYS
     Route: 042
  11. CEFTAZIDIME. [Concomitant]
     Active Substance: CEFTAZIDIME
     Indication: PRODUCT USED FOR UNKNOWN INDICATION
  12. DEXAMETHASONE. [Suspect]
     Active Substance: DEXAMETHASONE
     Indication: BURKITT^S LYMPHOMA
     Dosage: 20 MG/M2 IN A DAY IN 3 DIVIDED DOSES (IV/PO)
     Route: 065
  13. IBRUTINIB [Suspect]
     Active Substance: IBRUTINIB
     Indication: BURKITT^S LYMPHOMA
     Route: 048

REACTIONS (6)
  - Febrile bone marrow aplasia [Unknown]
  - Disease progression [Fatal]
  - Off label use [Unknown]
  - Intentional product use issue [Unknown]
  - Pyrexia [Recovered/Resolved]
  - Rash [Unknown]
